FAERS Safety Report 15965590 (Version 1)
Quarter: 2019Q1

REPORT INFORMATION
  Report Type: Spontaneous
  Country: US (occurrence: US)
  Receive Date: 20190215
  Receipt Date: 20190215
  Transmission Date: 20190418
  Serious: No
  Sender: FDA-Public Use
  Company Number: US-RIGEL PHARMACEUTICALS, INC.-2018FOS000260

PATIENT

DRUGS (2)
  1. TAVALISSE [Suspect]
     Active Substance: FOSTAMATINIB
     Dosage: 100 MG, BID
     Route: 048
     Dates: start: 20190201
  2. TAVALISSE [Suspect]
     Active Substance: FOSTAMATINIB
     Indication: IMMUNE THROMBOCYTOPENIC PURPURA
     Dosage: 100 MG, BID
     Route: 048
     Dates: start: 20180925, end: 20190126

REACTIONS (9)
  - Abdominal distension [Unknown]
  - Dizziness [Unknown]
  - Anxiety [Unknown]
  - Product dose omission [Unknown]
  - Weight increased [Unknown]
  - Tachyphrenia [Unknown]
  - Swelling face [Unknown]
  - Petechiae [Recovering/Resolving]
  - Disturbance in attention [Unknown]
